FAERS Safety Report 4320725-6 (Version None)
Quarter: 2004Q1

REPORT INFORMATION
  Report Type: 
  Country: None (occurrence: None)
  Receive Date: 20040315
  Receipt Date: 20040202
  Transmission Date: 20041129
  Serious: No
  Sender: FDA-Public Use
  Company Number: 2004197328US

PATIENT
  Age: 35 Year
  Sex: Male

DRUGS (2)
  1. BEXTRA [Suspect]
     Indication: HYPOAESTHESIA
     Dosage: 20 MG
     Dates: start: 20040101
  2. VICODIN [Suspect]
     Indication: PAIN
     Dates: start: 20040129, end: 20040129

REACTIONS (6)
  - DEPRESSED MOOD [None]
  - DIARRHOEA [None]
  - FATIGUE [None]
  - FEELING JITTERY [None]
  - HYPOAESTHESIA [None]
  - MOOD SWINGS [None]
